FAERS Safety Report 6175930-3 (Version None)
Quarter: 2009Q2

REPORT INFORMATION
  Report Type: 
  Country: None (occurrence: None)
  Receive Date: 20090501
  Receipt Date: 20090428
  Transmission Date: 20091009
  Serious: Yes (Death, Life-Threatening)
  Sender: FDA-Public Use
  Company Number: PHHO2009IT05478

PATIENT
  Sex: Male
  Weight: 70 kg

DRUGS (3)
  1. RAD 666 RAD+TAB+PTR [Suspect]
     Indication: HEART TRANSPLANT
     Dosage: UNK
     Route: 048
     Dates: start: 20070404
  2. RAD 666 RAD+TAB+PTR [Suspect]
     Dosage: 0.5 MG, BID
     Route: 048
     Dates: start: 20080306, end: 20090322
  3. NEORAL [Suspect]
     Dosage: 125 MG, BID
     Route: 048
     Dates: start: 20080404

REACTIONS (1)
  - LUNG NEOPLASM [None]
